FAERS Safety Report 5220638-1 (Version None)
Quarter: 2007Q1

REPORT INFORMATION
  Report Type: 
  Country: None (occurrence: None)
  Receive Date: 20070125
  Receipt Date: 20070125
  Transmission Date: 20070707
  Serious: Yes (Hospitalization)
  Sender: FDA-Public Use
  Company Number: None

PATIENT
  Sex: Female
  Weight: 67.1324 kg

DRUGS (3)
  1. ACCUPRIL [Suspect]
     Indication: HYPERTENSION
     Dosage: 20 MG PO QD
     Route: 048
  2. LOPRESSOR [Suspect]
     Indication: HYPERTENSION
     Dosage: 50 MG PO BID
     Route: 048
  3. PROTONIX [Concomitant]

REACTIONS (5)
  - FACE INJURY [None]
  - FALL [None]
  - JOINT INJURY [None]
  - LACERATION [None]
  - SYNCOPE [None]
